FAERS Safety Report 7402548-4 (Version None)
Quarter: 2011Q2

REPORT INFORMATION
  Report Type: 
  Country: None (occurrence: None)
  Receive Date: 20110408
  Receipt Date: 20110329
  Transmission Date: 20111010
  Serious: Yes (Other)
  Sender: FDA-Public Use
  Company Number: CA-JNJFOC-20110312331

PATIENT
  Sex: Female

DRUGS (1)
  1. ORTHO EVRA [Suspect]
     Indication: CONTRACEPTION
     Dosage: USED FOR ABOUT 5 YEARS
     Route: 062

REACTIONS (3)
  - LIVER FUNCTION TEST ABNORMAL [None]
  - MENSTRUATION DELAYED [None]
  - OVARIAN CYST [None]
